FAERS Safety Report 10183174 (Version 2)
Quarter: 2014Q2

REPORT INFORMATION
  Report Type: Report from Study
  Country: US (occurrence: US)
  Receive Date: 20140520
  Receipt Date: 20140604
  Transmission Date: 20141212
  Serious: Yes (Other)
  Sender: FDA-Public Use
  Company Number: US-SA-2014SA060426

PATIENT
  Age: 62 Year
  Sex: Female

DRUGS (4)
  1. LANTUS SOLOSTAR [Suspect]
     Indication: TYPE 2 DIABETES MELLITUS
     Dosage: FORM: LIQUID SYRINGE/PEN
     Route: 058
     Dates: start: 20131227, end: 20140517
  2. LANTUS SOLOSTAR [Suspect]
     Indication: TYPE 2 DIABETES MELLITUS
     Dosage: FORM: LIQUID SYRINGE/PEN
     Route: 058
  3. SOLOSTAR [Concomitant]
     Dates: start: 20131227, end: 20140517
  4. SOLOSTAR [Concomitant]

REACTIONS (5)
  - Surgery [Unknown]
  - Influenza [Unknown]
  - Weight decreased [Unknown]
  - Hypoaesthesia [Unknown]
  - Sinusitis [Recovered/Resolved]
